FAERS Safety Report 9562676 (Version 1)
Quarter: 2013Q3

REPORT INFORMATION
  Report Type: Spontaneous
  Country: US (occurrence: US)
  Receive Date: 20130927
  Receipt Date: 20130927
  Transmission Date: 20140515
  Serious: No
  Sender: FDA-Public Use
  Company Number: US-PFIZER INC-2013275923

PATIENT
  Age: 69 Year
  Sex: Male

DRUGS (4)
  1. SUTENT [Suspect]
     Indication: RENAL CELL CARCINOMA
     Dosage: 50 MG, UNK
     Dates: start: 20130313
  2. METHOTREXATE [Concomitant]
     Dosage: UNK
  3. PREDNISONE [Concomitant]
  4. FOLIC ACID [Concomitant]
     Dosage: UNK

REACTIONS (5)
  - Renal disorder [Unknown]
  - Limb discomfort [Unknown]
  - Blister [Unknown]
  - Diarrhoea [Unknown]
  - Nausea [Unknown]
